FAERS Safety Report 12252482 (Version 1)
Quarter: 2016Q2

REPORT INFORMATION
  Report Type: Spontaneous
  Country: US (occurrence: None)
  Receive Date: 20160408
  Receipt Date: 20160408
  Transmission Date: 20160815
  Serious: No
  Sender: FDA-Public Use
  Company Number: None

PATIENT
  Sex: Female

DRUGS (2)
  1. IBUPROFEN. [Suspect]
     Active Substance: IBUPROFEN
  2. TRULICITY [Suspect]
     Active Substance: DULAGLUTIDE

REACTIONS (9)
  - Hyperhidrosis [None]
  - Abdominal pain upper [None]
  - Vision blurred [None]
  - Dyspnoea [None]
  - Thirst [None]
  - Blood glucose decreased [None]
  - Cholecystostomy [None]
  - Postoperative wound infection [None]
  - Arthritis infective [None]
